FAERS Safety Report 7389510-5 (Version None)
Quarter: 2011Q2

REPORT INFORMATION
  Report Type: 
  Country: None (occurrence: None)
  Receive Date: 20110401
  Receipt Date: 20110321
  Transmission Date: 20111010
  Serious: Yes (Other)
  Sender: FDA-Public Use
  Company Number: PHHY2011MY23028

PATIENT
  Age: 45 Year
  Sex: Female

DRUGS (4)
  1. CLOZAPINE [Suspect]
     Indication: SCHIZOPHRENIA
     Dosage: 400 MG, UNK
  2. AMISULPRIDE [Concomitant]
     Dosage: 400 MG, UNK
  3. AMISULPRIDE [Concomitant]
     Dosage: 800 MG, UNK
  4. AMISULPRIDE [Concomitant]
     Dosage: 600 MG, UNK

REACTIONS (24)
  - DELUSION [None]
  - PAIN [None]
  - WAXY FLEXIBILITY [None]
  - POOR PERSONAL HYGIENE [None]
  - PYREXIA [None]
  - SPEECH DISORDER [None]
  - DECREASED APPETITE [None]
  - FAECAL INCONTINENCE [None]
  - SOMNOLENCE [None]
  - NEGATIVISM [None]
  - PSYCHIATRIC DECOMPENSATION [None]
  - IMMOBILE [None]
  - URINARY INCONTINENCE [None]
  - LEUKOCYTOSIS [None]
  - HEADACHE [None]
  - GRAND MAL CONVULSION [None]
  - ABNORMAL BEHAVIOUR [None]
  - STARING [None]
  - VOMITING [None]
  - ENCEPHALITIS [None]
  - SOCIAL AVOIDANT BEHAVIOUR [None]
  - DECREASED EYE CONTACT [None]
  - ENCEPHALOPATHY [None]
  - OTORRHOEA [None]
